FAERS Safety Report 16587827 (Version 3)
Quarter: 2019Q3

REPORT INFORMATION
  Report Type: Spontaneous
  Country: JP (occurrence: JP)
  Receive Date: 20190717
  Receipt Date: 20190801
  Transmission Date: 20191004
  Serious: Yes (Death, Hospitalization, Other)
  Sender: FDA-Public Use
  Company Number: JP-ALLERGAN-1923601US

PATIENT
  Sex: Female

DRUGS (1)
  1. BOTOX [Suspect]
     Active Substance: ONABOTULINUMTOXINA
     Indication: MUSCLE SPASTICITY
     Dosage: 150 UNITS, SINGLE
     Route: 030
     Dates: start: 20190128, end: 20190128

REACTIONS (4)
  - Aspiration [Recovering/Resolving]
  - Pneumonia aspiration [Fatal]
  - Blood pressure decreased [Fatal]
  - Pallor [Recovering/Resolving]

NARRATIVE: CASE EVENT DATE: 20190408
